FAERS Safety Report 15562556 (Version 1)
Quarter: 2018Q4

REPORT INFORMATION
  Report Type: Report from Study
  Country: US (occurrence: US)
  Receive Date: 20181029
  Receipt Date: 20181029
  Transmission Date: 20190205
  Serious: Yes (Hospitalization)
  Sender: FDA-Public Use
  Company Number: US-BAXTER-2018BAX026603

PATIENT
  Age: 64 Year
  Sex: Female

DRUGS (14)
  1. METHOTREXATE SODIUM. [Suspect]
     Active Substance: METHOTREXATE SODIUM
     Dosage: CONTINUOUS INFUSION OVER 22 HOURS ON DAY 1
     Route: 042
  2. DEXAMETHASONE. [Suspect]
     Active Substance: DEXAMETHASONE
     Indication: PRODUCT USED FOR UNKNOWN INDICATION
     Dosage: REGIMEN A (CYCLES 1, 3, 5, 7): ON DAYS 1-4 AND DAYS 11-14
     Route: 042
  3. CYCLOPHOSPHAMIDE FOR INJECTION, USP [Suspect]
     Active Substance: CYCLOPHOSPHAMIDE
     Indication: PRODUCT USED FOR UNKNOWN INDICATION
     Dosage: REGIMEN A (CYCLES 1, 3, 5, 7); OVER 3 HOURS TWICE A DAY ON DAYS 1-3
     Route: 042
  4. INOTUZUMAB OZOGAMICIN [Suspect]
     Active Substance: INOTUZUMAB OZOGAMICIN
     Indication: ACUTE LYMPHOCYTIC LEUKAEMIA
     Dosage: (CMC-544); REGIMEN A (CYCLES 1, 3, 5, 7): OVER 1 HOUR ON DAY 3
     Route: 042
     Dates: start: 20180718
  5. PEGFILGRASTIM [Suspect]
     Active Substance: PEGFILGRASTIM
     Indication: PRODUCT USED FOR UNKNOWN INDICATION
     Dosage: REGIMEN A (CYCLES 1, 3, 5, 7); ON DAY 4 UNTIL RECOVERY OF GRANULOCYTE COUNT
     Route: 058
  6. RITUXIMAB. [Suspect]
     Active Substance: RITUXIMAB
     Indication: PRODUCT USED FOR UNKNOWN INDICATION
     Dosage: REGIMEN A (CYCLES 1, 3, 5, 7); ON DAY 2 AND DAY 8 (CYCLES 1 AND 3 ONLY)
     Route: 042
  7. PEGFILGRASTIM [Suspect]
     Active Substance: PEGFILGRASTIM
     Dosage: REGIMEN B (CYCLES 2, 4, 6, 8); ON DAY 4 UNTIL RECOVERY OF GRANULOCYTE COUNT
     Route: 058
  8. INOTUZUMAB OZOGAMICIN [Suspect]
     Active Substance: INOTUZUMAB OZOGAMICIN
     Dosage: LAST DOSE PRIOR TO THE EVENT ONSET
     Route: 042
     Dates: start: 20180916, end: 20180916
  9. ARA-C [Suspect]
     Active Substance: CYTARABINE
     Indication: PRODUCT USED FOR UNKNOWN INDICATION
     Dosage: REGIMEN B (CYCLES 2, 4, 6, 8); OVER 3 HOURS TWICE A DAY X 4 DOSES ON DAYS 2 AND 3
     Route: 042
  10. RITUXIMAB. [Suspect]
     Active Substance: RITUXIMAB
     Dosage: REGIMEN B (CYCLES 2, 4, 6, 8); ON DAY 2 AND 8 OF CYCLES 2 AND 4
     Route: 042
  11. MESNA FOR INJECTION 1 GRAM [Suspect]
     Active Substance: MESNA
     Indication: PRODUCT USED FOR UNKNOWN INDICATION
     Dosage: REGIMEN A (CYCLES 1, 3, 5, 7): DAILY OVER 24 HOURS, ON DAYS 1-3
     Route: 042
  12. INOTUZUMAB OZOGAMICIN [Suspect]
     Active Substance: INOTUZUMAB OZOGAMICIN
     Dosage: REGIMEN B (CYCLES 2, 4, 6, 8); ON DAY 2 OR 3 (CYCLES 2 AND 4 ONLY);
     Route: 042
  13. VINCRISTINE SULFATE. [Suspect]
     Active Substance: VINCRISTINE SULFATE
     Indication: PRODUCT USED FOR UNKNOWN INDICATION
     Dosage: REGIMEN A (CYCLES 1, 3, 5, 7): DAY 1 AND DAY 8
     Route: 042
  14. METHOTREXATE SODIUM. [Suspect]
     Active Substance: METHOTREXATE SODIUM
     Indication: PRODUCT USED FOR UNKNOWN INDICATION
     Dosage: REGIMEN B (CYCLES 2, 4, 6, 8); OVER 2 HOURS ON DAY 1
     Route: 042

REACTIONS (1)
  - Hyperglycaemia [Recovered/Resolved]

NARRATIVE: CASE EVENT DATE: 20180917
